FAERS Safety Report 4906739-3 (Version None)
Quarter: 2006Q1

REPORT INFORMATION
  Report Type: 
  Country: None (occurrence: None)
  Receive Date: 20060206
  Receipt Date: 20060119
  Transmission Date: 20060701
  Serious: Yes (Hospitalization)
  Sender: FDA-Public Use
  Company Number: 2006015159

PATIENT
  Age: 42 Year
  Sex: Female

DRUGS (8)
  1. ATARAX [Suspect]
     Indication: ILL-DEFINED DISORDER
     Dosage: ORAL
     Route: 048
     Dates: start: 20051122, end: 20051206
  2. CELLCEPT [Suspect]
     Indication: ILL-DEFINED DISORDER
     Dosage: INTRAVENOUS
     Route: 042
     Dates: start: 20051124, end: 20051214
  3. AERIUS (DESLORATADINE) [Suspect]
     Indication: ILL-DEFINED DISORDER
     Dosage: 1 IN 1 D, ORAL
     Route: 048
     Dates: start: 20051122, end: 20051206
  4. CANCIDAS [Suspect]
     Indication: ILL-DEFINED DISORDER
     Dosage: 50 MG (1 D), INTRAVENOUS
     Route: 042
     Dates: start: 20051125, end: 20051211
  5. CEFTAZIDIME PENTAHYDRATE [Suspect]
     Indication: ILL-DEFINED DISORDER
     Dosage: 3 GRAM (1 D), INTRAVENOUS
     Route: 042
     Dates: start: 20051128, end: 20051213
  6. TARGOCID [Suspect]
     Indication: ILL-DEFINED DISORDER
     Dosage: 200 MG (1 D), INTRAVENOUS
     Route: 042
     Dates: start: 20051128, end: 20051213
  7. MISULBAN (BUSULFAN) [Concomitant]
  8. FLUDARA [Concomitant]

REACTIONS (2)
  - FOCAL NODULAR HYPERPLASIA [None]
  - HEPATITIS TOXIC [None]
